FAERS Safety Report 16739066 (Version 1)
Quarter: 2019Q3

REPORT INFORMATION
  Report Type: Report from Study
  Country: None (occurrence: CA)
  Receive Date: 20190826
  Receipt Date: 20190826
  Transmission Date: 20191005
  Serious: Yes (Other)
  Sender: FDA-Public Use
  Company Number: CA-ABBVIE-16K-028-1649161-00

PATIENT
  Age: 57 Year
  Sex: Female

DRUGS (1)
  1. HUMIRA [Suspect]
     Active Substance: ADALIMUMAB
     Indication: CROHN^S DISEASE
     Route: 058
     Dates: start: 20160505

REACTIONS (7)
  - Dizziness [Recovered/Resolved]
  - Night sweats [Recovered/Resolved]
  - Peripheral swelling [Recovered/Resolved]
  - Vaginal fistula [Not Recovered/Not Resolved]
  - Taste disorder [Recovered/Resolved]
  - Hypoaesthesia oral [Recovered/Resolved]
  - Fistula discharge [Not Recovered/Not Resolved]

NARRATIVE: CASE EVENT DATE: 2016
